FAERS Safety Report 6818825-1 (Version None)
Quarter: 2010Q2

REPORT INFORMATION
  Report Type: 
  Country: None (occurrence: None)
  Receive Date: 20100630
  Receipt Date: 20100615
  Transmission Date: 20101027
  Serious: No
  Sender: FDA-Public Use
  Company Number: 2006002157

PATIENT
  Age: 48 Year
  Sex: Female

DRUGS (3)
  1. ERLOTINIB HYDROCHLORIDE [Suspect]
     Indication: OVARIAN CANCER
     Dosage: 150 MG (150 MG, QD), ORAL; 15 MG (QD), ORAL
     Route: 048
     Dates: start: 20061201, end: 20070108
  2. ERLOTINIB HYDROCHLORIDE [Suspect]
     Indication: OVARIAN CANCER
     Dosage: 150 MG (150 MG, QD), ORAL; 15 MG (QD), ORAL
     Route: 048
     Dates: start: 20060901
  3. ERYTHROMYCIN [Concomitant]

REACTIONS (3)
  - BONE SWELLING [None]
  - DISEASE PROGRESSION [None]
  - OVARIAN CANCER [None]
